FAERS Safety Report 25813567 (Version 2)
Quarter: 2025Q3

REPORT INFORMATION
  Report Type: Spontaneous
  Country: US (occurrence: US)
  Receive Date: 20250917
  Receipt Date: 20250926
  Transmission Date: 20251021
  Serious: Yes (Death, Hospitalization, Other)
  Sender: ARDELYX
  Company Number: US-ARDELYX-2025ARDX006641

PATIENT
  Age: 54 Year
  Sex: Male

DRUGS (1)
  1. XPHOZAH [Suspect]
     Active Substance: TENAPANOR HYDROCHLORIDE
     Indication: Chronic kidney disease
     Route: 048
     Dates: start: 202406, end: 2025

REACTIONS (2)
  - Plasma cell myeloma [Fatal]
  - Hospice care [Unknown]

NARRATIVE: CASE EVENT DATE: 20250822
